FAERS Safety Report 5202125-X (Version None)
Quarter: 2007Q1

REPORT INFORMATION
  Report Type: 
  Country: None (occurrence: None)
  Receive Date: 20070103
  Receipt Date: 20061221
  Transmission Date: 20070707
  Serious: Yes (Disabling)
  Sender: FDA-Public Use
  Company Number: 2006-152186-NL

PATIENT
  Age: 39 Year
  Sex: Female

DRUGS (2)
  1. MIRTAZAPINE [Suspect]
     Dosage: 1 DF
     Dates: start: 20060506, end: 20060901
  2. FLURAZEPAM HCL [Suspect]
     Indication: INSOMNIA
     Dosage: 30 MG ORAL
     Route: 048
     Dates: start: 20060605

REACTIONS (2)
  - ECZEMA [None]
  - REFUSAL OF TREATMENT BY PATIENT [None]
